APPROVED DRUG PRODUCT: REXULTI
Active Ingredient: BREXPIPRAZOLE
Strength: 3MG
Dosage Form/Route: TABLET;ORAL
Application: N205422 | Product #005 | TE Code: AB
Applicant: OTSUKA PHARMACEUTICAL CO LTD
Approved: Jul 10, 2015 | RLD: Yes | RS: No | Type: RX

PATENTS:
Patent 9839637 | Expires: Apr 12, 2026
Patent 8349840 | Expires: Apr 12, 2026
Patent 8618109 | Expires: Apr 12, 2026
Patent 9839637 | Expires: Apr 12, 2026
Patent 9839637 | Expires: Apr 12, 2026
Patent 8618109 | Expires: Apr 12, 2026
Patent RE48059 | Expires: Dec 23, 2028
Patent 7888362 | Expires: Apr 12, 2026
Patent 10307419 | Expires: Oct 12, 2032
Patent 9839637*PED | Expires: Oct 12, 2026
Patent 8618109*PED | Expires: Oct 12, 2026
Patent 7888362*PED | Expires: Oct 12, 2026
Patent 8349840*PED | Expires: Oct 12, 2026
Patent RE48059*PED | Expires: Jun 23, 2029
Patent 10307419*PED | Expires: Apr 12, 2033

EXCLUSIVITY:
Code: I-913 | Date: May 10, 2026
Code: M-14 | Date: May 8, 2027
Code: M-315 | Date: May 9, 2028
Code: PED | Date: Nov 8, 2027
Code: PED | Date: Nov 10, 2026